FAERS Safety Report 10238437 (Version 19)
Quarter: 2018Q3

REPORT INFORMATION
  Report Type: Report from Study
  Country: CA (occurrence: CA)
  Receive Date: 20140616
  Receipt Date: 20180806
  Transmission Date: 20181010
  Serious: Yes (Disabling, Other)
  Sender: FDA-Public Use
  Company Number: PHHY2014CA073310

PATIENT
  Age: 66 Year
  Sex: Male

DRUGS (2)
  1. SANDOSTATIN LAR DEPOT [Suspect]
     Active Substance: OCTREOTIDE ACETATE
     Dosage: 30 MG, (EVERY 3 WEEKS)
     Route: 030
  2. SANDOSTATIN LAR DEPOT [Suspect]
     Active Substance: OCTREOTIDE ACETATE
     Indication: ACROMEGALY
     Dosage: 30 MG, EVERY 4 WEEKS
     Route: 030
     Dates: start: 20091008

REACTIONS (19)
  - Gait disturbance [Unknown]
  - Eye swelling [Unknown]
  - Peripheral swelling [Unknown]
  - Cardiac disorder [Unknown]
  - Sleep apnoea syndrome [Not Recovered/Not Resolved]
  - Depression [Unknown]
  - Limb discomfort [Unknown]
  - Pain [Unknown]
  - Blood pressure increased [Unknown]
  - Inappropriate schedule of drug administration [Unknown]
  - Intervertebral disc protrusion [Unknown]
  - Hypertension [Unknown]
  - Skin ulcer [Not Recovered/Not Resolved]
  - Blindness unilateral [Unknown]
  - Hypoaesthesia [Unknown]
  - Eye disorder [Unknown]
  - Mental disorder [Unknown]
  - Needle issue [Unknown]
  - Oxygen saturation decreased [Unknown]

NARRATIVE: CASE EVENT DATE: 20161014
